FAERS Safety Report 16970358 (Version 1)
Quarter: 2019Q4

REPORT INFORMATION
  Report Type: Spontaneous
  Country: US (occurrence: US)
  Receive Date: 20190911
  Receipt Date: 20190911
  Transmission Date: 20200122
  Serious: No
  Sender: FDA-Public Use
  Company Number: None

PATIENT
  Age: 65 Year
  Sex: Male
  Weight: 85.73 kg

DRUGS (1)
  1. INFLIXIMAB-ABDA [Suspect]
     Active Substance: INFLIXIMAB-ABDA
     Indication: COLITIS ULCERATIVE
     Route: 042
     Dates: start: 20190827, end: 20190827

REACTIONS (6)
  - Chest discomfort [None]
  - Dizziness [None]
  - Vomiting [None]
  - Infusion related reaction [None]
  - Chills [None]
  - Nausea [None]

NARRATIVE: CASE EVENT DATE: 20190827
